FAERS Safety Report 10206806 (Version 1)
Quarter: 2014Q2

REPORT INFORMATION
  Report Type: Spontaneous
  Country: US (occurrence: None)
  Receive Date: 20140528
  Receipt Date: 20140528
  Transmission Date: 20141212
  Serious: Yes (Other)
  Sender: FDA-Public Use
  Company Number: None

PATIENT
  Age: 83 Year
  Sex: Female

DRUGS (2)
  1. AZITHROMYCIN [Suspect]
     Indication: EVIDENCE BASED TREATMENT
     Route: 048
     Dates: start: 20140506
  2. AZITHROMYCIN [Suspect]
     Indication: LUNG INFECTION
     Route: 048
     Dates: start: 20140506

REACTIONS (3)
  - Nodal rhythm [None]
  - Electrocardiogram QT prolonged [None]
  - Hypotension [None]
